FAERS Safety Report 4872696-1 (Version None)
Quarter: 2006Q1

REPORT INFORMATION
  Report Type: 
  Country: None (occurrence: None)
  Receive Date: 20060103
  Receipt Date: 20051222
  Transmission Date: 20060701
  Serious: Yes (Hospitalization)
  Sender: FDA-Public Use
  Company Number: CHPA2005US03098

PATIENT
  Age: 52 Year
  Sex: Female
  Weight: 68 kg

DRUGS (4)
  1. NICOTINE [Suspect]
     Indication: SMOKING CESSATION THERAPY
     Dosage: 1 PATCH DURING DAY TIME, TRANSDERMAL
     Route: 062
     Dates: start: 20050912, end: 20050915
  2. ZANTAC [Concomitant]
  3. PREMARIN [Concomitant]
  4. AMBIEN [Concomitant]

REACTIONS (8)
  - ASTHENIA [None]
  - BACK PAIN [None]
  - CARDIAC FAILURE CONGESTIVE [None]
  - DYSPNOEA [None]
  - HYPERVENTILATION [None]
  - PAINFUL RESPIRATION [None]
  - PNEUMONIA [None]
  - TREATMENT NONCOMPLIANCE [None]
